FAERS Safety Report 13695321 (Version 1)
Quarter: 2017Q2

REPORT INFORMATION
  Report Type: Spontaneous
  Country: US (occurrence: US)
  Receive Date: 20170627
  Receipt Date: 20170627
  Transmission Date: 20170830
  Serious: No
  Sender: FDA-Public Use
  Company Number: US-EGALET US INC-US-2017EGA000437

PATIENT

DRUGS (1)
  1. SPRIX [Suspect]
     Active Substance: KETOROLAC TROMETHAMINE
     Indication: PROCEDURAL PAIN
     Dosage: 1 SPRAY INTRANASALLY INTO THE RIGHT NOSTRIL Q6-8H
     Route: 045
     Dates: start: 20170428

REACTIONS (4)
  - Oral discomfort [Unknown]
  - Ear discomfort [Unknown]
  - Burn oral cavity [Unknown]
  - Nasal discomfort [Recovering/Resolving]

NARRATIVE: CASE EVENT DATE: 20170428
